FAERS Safety Report 7867283-7 (Version None)
Quarter: 2011Q4

REPORT INFORMATION
  Report Type: 
  Country: None (occurrence: None)
  Receive Date: 20111028
  Receipt Date: 20111018
  Transmission Date: 20120403
  Serious: Yes (Other)
  Sender: FDA-Public Use
  Company Number: PHHY2011GB91890

PATIENT
  Sex: Female

DRUGS (2)
  1. AMOXICILLIN [Suspect]
  2. PREDNISOLONE [Suspect]
     Dosage: 20 MG, QD

REACTIONS (2)
  - PSYCHOTIC DISORDER [None]
  - OVERDOSE [None]
